FAERS Safety Report 11500935 (Version 1)
Quarter: 2015Q3

REPORT INFORMATION
  Report Type: Spontaneous
  Country: US (occurrence: US)
  Receive Date: 20150903
  Receipt Date: 20150903
  Transmission Date: 20151125
  Serious: No
  Sender: FDA-Public Use
  Company Number: US-ELI_LILLY_AND_COMPANY-US200901001336

PATIENT
  Age: 60 Year
  Sex: Female

DRUGS (8)
  1. LANTUS [Concomitant]
     Active Substance: INSULIN GLARGINE
     Dosage: 30 U, EACH EVENING
     Dates: start: 1998
  2. TEMAZEPAM. [Concomitant]
     Active Substance: TEMAZEPAM
  3. SERTRALINE [Concomitant]
     Active Substance: SERTRALINE HYDROCHLORIDE
  4. CARVEDILOL. [Concomitant]
     Active Substance: CARVEDILOL
  5. HUMALOG [Suspect]
     Active Substance: INSULIN LISPRO
     Dosage: 5 U, 3/D
  6. AMLOPIN [Concomitant]
     Active Substance: AMLODIPINE BESYLATE
  7. PLAVIX [Concomitant]
     Active Substance: CLOPIDOGREL BISULFATE
  8. SIMVASTATIN. [Concomitant]
     Active Substance: SIMVASTATIN

REACTIONS (2)
  - Blood glucose decreased [Unknown]
  - Blood glucose increased [Unknown]

NARRATIVE: CASE EVENT DATE: 20081219
